FAERS Safety Report 5440458-2 (Version None)
Quarter: 2007Q3

REPORT INFORMATION
  Report Type: 
  Country: None (occurrence: None)
  Receive Date: 20070831
  Receipt Date: 20070824
  Transmission Date: 20080115
  Serious: Yes (Disabling)
  Sender: FDA-Public Use
  Company Number: GB-ELI_LILLY_AND_COMPANY-GB200605000549

PATIENT
  Age: 79 Year
  Sex: Female

DRUGS (3)
  1. FORTEO [Suspect]
     Indication: OSTEOPOROSIS
     Dosage: 20 UG, DAILY (1/D)
     Route: 058
     Dates: start: 20060419, end: 20070219
  2. ARICEPT                                 /JPN/ [Concomitant]
     Indication: DEMENTIA
     Dosage: 10 MG, EACH EVENING
     Route: 048
  3. CO-DYDRAMOL [Concomitant]
     Indication: PAIN
     Dosage: 2 D/F, AS NEEDED

REACTIONS (6)
  - ASTHENIA [None]
  - BALANCE DISORDER [None]
  - CONDITION AGGRAVATED [None]
  - GAIT DISTURBANCE [None]
  - LETHARGY [None]
  - POSTURE ABNORMAL [None]
